FAERS Safety Report 4790316-1 (Version None)
Quarter: 2005Q4

REPORT INFORMATION
  Report Type: 
  Country: None (occurrence: None)
  Receive Date: 20051005
  Receipt Date: 20051005
  Transmission Date: 20060501
  Serious: Yes (Hospitalization)
  Sender: FDA-Public Use
  Company Number: None

PATIENT
  Sex: Male

DRUGS (21)
  1. TEMAZEPAM [Suspect]
     Indication: INSOMNIA
     Dosage: 15MG PO
     Route: 048
     Dates: start: 20040727
  2. BACTRIM [Concomitant]
  3. FLUCONAZIDE [Concomitant]
  4. NYSTATIN [Concomitant]
  5. VANCOMYCIN [Concomitant]
  6. PREDNISONE [Concomitant]
  7. TACROLIMUS [Concomitant]
  8. VALGANCYCLOVIR [Concomitant]
  9. SSI [Concomitant]
  10. SERTRALINE HCL [Concomitant]
  11. HEPARIN [Concomitant]
  12. CACO5 [Concomitant]
  13. FOLIC ACID [Concomitant]
  14. LANSOPRAZOLE [Concomitant]
  15. ZINC SULFATE [Concomitant]
  16. VIT C [Concomitant]
  17. APAP TAB [Concomitant]
  18. FESO4 [Concomitant]
  19. SYNTHROID [Concomitant]
  20. LOPERAMIDE [Concomitant]
  21. MEGACE [Concomitant]

REACTIONS (4)
  - HYPOTHERMIA [None]
  - PNEUMONIA ASPIRATION [None]
  - RESPIRATORY FAILURE [None]
  - SOMNOLENCE [None]
